FAERS Safety Report 7465167-X (Version None)
Quarter: 2011Q2

REPORT INFORMATION
  Report Type: 
  Country: None (occurrence: None)
  Receive Date: 20110509
  Receipt Date: 20110504
  Transmission Date: 20111010
  Serious: Yes (Death, Hospitalization)
  Sender: FDA-Public Use
  Company Number: GB-TEVA-280449ISR

PATIENT
  Age: 62 Year
  Sex: Male

DRUGS (2)
  1. PREDNISOLONE [Suspect]
     Indication: CHRONIC LYMPHOCYTIC LEUKAEMIA
  2. CYCLOSPORINE [Suspect]
     Indication: CHRONIC LYMPHOCYTIC LEUKAEMIA

REACTIONS (9)
  - PYREXIA [None]
  - DYSPNOEA [None]
  - SEPSIS [None]
  - ERYTHEMA [None]
  - GRANULOMA [None]
  - MYCOBACTERIUM MARINUM INFECTION [None]
  - RESPIRATORY TRACT INFECTION [None]
  - COUGH [None]
  - NODULE [None]
